FAERS Safety Report 10052231 (Version 1)
Quarter: 2014Q2

REPORT INFORMATION
  Report Type: Spontaneous
  Country: US (occurrence: US)
  Receive Date: 20140402
  Receipt Date: 20140402
  Transmission Date: 20141212
  Serious: Yes (Hospitalization)
  Sender: FDA-Public Use
  Company Number: US-BAYER-2014-047882

PATIENT
  Age: 27 Year
  Sex: Female

DRUGS (5)
  1. YASMIN [Suspect]
     Indication: MENSTRUATION IRREGULAR
     Dosage: UNK
  2. YASMIN [Suspect]
     Indication: HIRSUTISM
  3. YASMIN [Suspect]
     Indication: CONTRACEPTION
  4. GARDASIL [Concomitant]
  5. MULTIVITAMIN [Concomitant]

REACTIONS (2)
  - Pulmonary embolism [None]
  - Deep vein thrombosis [None]
